FAERS Safety Report 23172905 (Version 1)
Quarter: 2023Q4

REPORT INFORMATION
  Report Type: Spontaneous
  Country: US (occurrence: US)
  Receive Date: 20231110
  Receipt Date: 20231110
  Transmission Date: 20240109
  Serious: No
  Sender: FDA-Public Use
  Company Number: US-GALDERMA-US2022016079

PATIENT

DRUGS (2)
  1. AKLIEF [Suspect]
     Active Substance: TRIFAROTENE
     Indication: Acne
     Dosage: 1 DOSAGE FORM, 45G
     Route: 061
     Dates: start: 20221020
  2. SPIRONOLACTONE [Concomitant]
     Active Substance: SPIRONOLACTONE
     Indication: Acne

REACTIONS (8)
  - Dry skin [Not Recovered/Not Resolved]
  - Erythema [Unknown]
  - Dizziness [Unknown]
  - Dyspnoea [Unknown]
  - Skin burning sensation [Unknown]
  - Vision blurred [Not Recovered/Not Resolved]
  - Skin exfoliation [Unknown]
  - Overdose [Recovered/Resolved]

NARRATIVE: CASE EVENT DATE: 20221001
